FAERS Safety Report 10502886 (Version 1)
Quarter: 2014Q4

REPORT INFORMATION
  Report Type: Report from Study
  Country: BR (occurrence: BR)
  Receive Date: 20141007
  Receipt Date: 20141007
  Transmission Date: 20150528
  Serious: Yes (Hospitalization)
  Sender: FDA-Public Use
  Company Number: BR-ABBVIE-14K-020-1290853-00

PATIENT
  Age: 28 Year
  Sex: Female
  Weight: 89 kg

DRUGS (2)
  1. HUMIRA [Suspect]
     Active Substance: ADALIMUMAB
     Indication: PSORIASIS
     Route: 058
     Dates: start: 20090623, end: 2011
  2. UREA. [Concomitant]
     Active Substance: UREA
     Indication: PRODUCT USED FOR UNKNOWN INDICATION

REACTIONS (5)
  - Epilepsy [Recovering/Resolving]
  - Syncope [Recovering/Resolving]
  - Alopecia [Recovering/Resolving]
  - Drooling [Unknown]
  - Anxiety [Unknown]

NARRATIVE: CASE EVENT DATE: 20140928
